FAERS Safety Report 5786346-3 (Version None)
Quarter: 2008Q2

REPORT INFORMATION
  Report Type: 
  Country: None (occurrence: None)
  Receive Date: 20080624
  Receipt Date: 20070717
  Transmission Date: 20081010
  Serious: No
  Sender: FDA-Public Use
  Company Number: US-ASTRAZENECA-2007UW16963

PATIENT
  Age: 78 Year
  Sex: Male
  Weight: 71.7 kg

DRUGS (9)
  1. PULMICORT-100 [Suspect]
     Indication: CHRONIC OBSTRUCTIVE PULMONARY DISEASE
     Route: 055
     Dates: start: 20070701
  2. DUONEB [Concomitant]
  3. LASIX [Concomitant]
  4. MILK OF MAGNESIA [Concomitant]
  5. OMEPRAZOLE [Concomitant]
  6. IRON [Concomitant]
  7. POTASSIUM CHLORIDE [Concomitant]
  8. QUININE [Concomitant]
  9. HYDROXYZINE [Concomitant]

REACTIONS (1)
  - OEDEMA PERIPHERAL [None]
